FAERS Safety Report 4705928-0 (Version None)
Quarter: 2005Q2

REPORT INFORMATION
  Report Type: 
  Country: None (occurrence: None)
  Receive Date: 20050629
  Receipt Date: 20050310
  Transmission Date: 20051028
  Serious: Yes (Hospitalization)
  Sender: FDA-Public Use
  Company Number: 10453

PATIENT
  Age: 70 Year
  Sex: Male
  Weight: 78 kg

DRUGS (4)
  1. CYTARABINE [Suspect]
     Indication: ACUTE MYELOID LEUKAEMIA
     Dosage: 100 MG/M2 OTH IV
     Route: 042
     Dates: start: 20050205
  2. DAUNORUBICIN HCL [Suspect]
     Indication: ACUTE MYELOID LEUKAEMIA
     Dosage: 45 MG/M2 OTH IV
     Route: 042
     Dates: start: 20050205
  3. PLACEBO [Suspect]
     Indication: ACUTE MYELOID LEUKAEMIA
     Dosage: 550 MG/M2 OTH IV
     Route: 042
     Dates: start: 20050205
  4. G-CSF [Concomitant]

REACTIONS (27)
  - ALPHA HAEMOLYTIC STREPTOCOCCAL INFECTION [None]
  - ANOREXIA [None]
  - APLASIA [None]
  - CENTRAL LINE INFECTION [None]
  - CHILLS [None]
  - COORDINATION ABNORMAL [None]
  - COUGH [None]
  - DECREASED APPETITE [None]
  - DIARRHOEA [None]
  - DYSPNOEA [None]
  - EPISTAXIS [None]
  - FATIGUE [None]
  - FEBRILE NEUTROPENIA [None]
  - GINGIVAL ULCERATION [None]
  - HAEMATURIA [None]
  - HYPERCALCAEMIA [None]
  - HYPERHIDROSIS [None]
  - HYPOTENSION [None]
  - INFECTION [None]
  - ORAL MUCOSAL PETECHIAE [None]
  - PHARYNGOLARYNGEAL PAIN [None]
  - POSTNASAL DRIP [None]
  - PRODUCTIVE COUGH [None]
  - SPUTUM DISCOLOURED [None]
  - STAPHYLOCOCCAL INFECTION [None]
  - TACHYCARDIA [None]
  - TREMOR [None]
